FAERS Safety Report 7555262-9 (Version None)
Quarter: 2011Q2

REPORT INFORMATION
  Report Type: 
  Country: None (occurrence: None)
  Receive Date: 20110617
  Receipt Date: 20110328
  Transmission Date: 20111010
  Serious: No
  Sender: FDA-Public Use
  Company Number: US-MYLANLABS-2011S1005479

PATIENT
  Age: 43 Year
  Sex: Female

DRUGS (9)
  1. NEPHROCAPS [Concomitant]
     Route: 048
  2. PREDNISONE [Concomitant]
     Route: 048
  3. LOPRESSOR [Concomitant]
     Route: 048
  4. FERROUS SULFATE TAB [Concomitant]
     Route: 048
  5. LASIX [Concomitant]
  6. BACTRIM [Concomitant]
  7. TACROLIMUS [Suspect]
     Indication: KIDNEY TRANSPLANT REJECTION
     Route: 048
     Dates: start: 20010101
  8. AP CALCIUM+VIT D [Concomitant]
     Route: 048
  9. TACROLIMUS [Suspect]
     Route: 048
     Dates: start: 20010101

REACTIONS (1)
  - ALOPECIA [None]
